FAERS Safety Report 25429451 (Version 2)
Quarter: 2025Q3

REPORT INFORMATION
  Report Type: Spontaneous
  Country: EU (occurrence: EU)
  Receive Date: 20250612
  Receipt Date: 20250722
  Transmission Date: 20251021
  Serious: Yes (Other)
  Sender: MYLAN
  Company Number: None

PATIENT
  Age: 56 Year
  Sex: Male

DRUGS (3)
  1. VENLAFAXINE [Suspect]
     Active Substance: VENLAFAXINE HYDROCHLORIDE
     Indication: Depression
     Dosage: 75 MILLIGRAM, TID,  3 TABLETS OF 75MG PER DAY
     Dates: start: 202412
  2. FENOFIBRATE [Concomitant]
     Active Substance: FENOFIBRATE
  3. POLARAMINE [Concomitant]
     Active Substance: DEXCHLORPHENIRAMINE MALEATE

REACTIONS (1)
  - Lichen planus pemphigoides [Recovering/Resolving]

NARRATIVE: CASE EVENT DATE: 20250301
